FAERS Safety Report 13610884 (Version 2)
Quarter: 2017Q4

REPORT INFORMATION
  Report Type: Spontaneous
  Country: GB (occurrence: GB)
  Receive Date: 20170605
  Receipt Date: 20171101
  Transmission Date: 20180320
  Serious: Yes (Life-Threatening, Disabling, Other)
  Sender: FDA-Public Use
  Company Number: PHFR2017GB003989

PATIENT
  Age: 30 Year
  Sex: Female

DRUGS (1)
  1. TOPIRAMATE. [Suspect]
     Active Substance: TOPIRAMATE
     Indication: MIGRAINE PROPHYLAXIS
     Route: 048

REACTIONS (13)
  - Alice in wonderland syndrome [Recovered/Resolved]
  - Suicidal ideation [Recovering/Resolving]
  - Borderline personality disorder [Unknown]
  - Epistaxis [Recovered/Resolved]
  - Gingival bleeding [Recovered/Resolved]
  - Post-traumatic stress disorder [Unknown]
  - Intentional self-injury [Recovering/Resolving]
  - Decreased appetite [Recovered/Resolved]
  - Depression [Recovering/Resolving]
  - Hallucinations, mixed [Recovered/Resolved]
  - Mood swings [Recovering/Resolving]
  - Abnormal loss of weight [Recovered/Resolved]
  - Dizziness [Recovered/Resolved]
